FAERS Safety Report 6390518-7 (Version None)
Quarter: 2009Q4

REPORT INFORMATION
  Report Type: 
  Country: None (occurrence: None)
  Receive Date: 20091005
  Receipt Date: 20091005
  Transmission Date: 20100525
  Serious: Yes (Hospitalization, Other)
  Sender: FDA-Public Use
  Company Number: None

PATIENT
  Age: 27 Year
  Sex: Female
  Weight: 97.5234 kg

DRUGS (1)
  1. YAZ [Suspect]
     Indication: POLYCYSTIC OVARIES
     Dosage: 1 PILL 1 X DAY PO
     Route: 048
     Dates: start: 20060501, end: 20090416

REACTIONS (7)
  - ECONOMIC PROBLEM [None]
  - GALLBLADDER DISORDER [None]
  - IMPAIRED WORK ABILITY [None]
  - METRORRHAGIA [None]
  - PAIN [None]
  - POST PROCEDURAL COMPLICATION [None]
  - POST PROCEDURAL INFECTION [None]
